FAERS Safety Report 7812424-0 (Version None)
Quarter: 2011Q4

REPORT INFORMATION
  Report Type: 
  Country: None (occurrence: None)
  Receive Date: 20111013
  Receipt Date: 20111007
  Transmission Date: 20120403
  Serious: Yes (Life-Threatening, Hospitalization)
  Sender: FDA-Public Use
  Company Number: GB-PFIZER INC-2011180716

PATIENT
  Age: 37 Year
  Sex: Female
  Weight: 70 kg

DRUGS (2)
  1. HEMABATE [Suspect]
     Indication: OFF LABEL USE
     Dosage: 500 MG, (250 MG X 2 GIVEN AS STAT)
     Route: 030
     Dates: start: 20110804, end: 20110804
  2. HEMABATE [Suspect]
     Indication: HAEMORRHAGE

REACTIONS (3)
  - CARDIAC ARREST [None]
  - CYANOSIS [None]
  - HYPOTENSION [None]
